FAERS Safety Report 12089019 (Version 1)
Quarter: 2016Q1

REPORT INFORMATION
  Report Type: Spontaneous
  Country: US (occurrence: US)
  Receive Date: 20160218
  Receipt Date: 20160218
  Transmission Date: 20160526
  Serious: No
  Sender: FDA-Public Use
  Company Number: US-TEVA-582519USA

PATIENT
  Age: 79 Year
  Sex: Female
  Weight: 59 kg

DRUGS (5)
  1. MIRAPEX [Suspect]
     Active Substance: PRAMIPEXOLE DIHYDROCHLORIDE
     Indication: RESTLESS LEGS SYNDROME
     Dosage: 1 TABLET IN THE MORNING, 1 TABLET 2-3 HOURS BEFORE BED
     Route: 048
     Dates: start: 20150720
  2. SIMVASTATIN. [Concomitant]
     Active Substance: SIMVASTATIN
     Indication: BLOOD CHOLESTEROL INCREASED
     Dosage: 40 MILLIGRAM DAILY; AFTER DINNER
     Route: 048
  3. PRAMIPEXOLE. [Suspect]
     Active Substance: PRAMIPEXOLE
     Dosage: 1-3 TABLETS, 2-3 TIMES BEFORE BEDTIME
     Route: 065
  4. CITALOPRAM [Concomitant]
     Active Substance: CITALOPRAM HYDROBROMIDE
     Dosage: 20 MILLIGRAM DAILY; EVERY MORNING
     Route: 048
  5. ASPIRIN. [Concomitant]
     Active Substance: ASPIRIN
     Indication: ANTICOAGULANT THERAPY
     Dosage: 81 MILLIGRAM DAILY;
     Route: 048

REACTIONS (5)
  - Pain in extremity [Not Recovered/Not Resolved]
  - Nausea [Not Recovered/Not Resolved]
  - Arthralgia [Not Recovered/Not Resolved]
  - Drug ineffective [Not Recovered/Not Resolved]
  - Decreased appetite [Not Recovered/Not Resolved]

NARRATIVE: CASE EVENT DATE: 20150721
